FAERS Safety Report 23936734 (Version 2)
Quarter: 2024Q2

REPORT INFORMATION
  Report Type: Spontaneous
  Country: US (occurrence: US)
  Receive Date: 20240604
  Receipt Date: 20240605
  Transmission Date: 20240716
  Serious: Yes (Other)
  Sender: FDA-Public Use
  Company Number: US-PFIZER INC-202400182024

PATIENT
  Age: 10 Year
  Sex: Female
  Weight: 106.59 kg

DRUGS (1)
  1. SYNAREL [Suspect]
     Active Substance: NAFARELIN ACETATE
     Dosage: UNK
     Route: 064

REACTIONS (3)
  - Maternal exposure before pregnancy [Unknown]
  - Scoliosis [Not Recovered/Not Resolved]
  - Bone disorder [Unknown]
